FAERS Safety Report 13097613 (Version 1)
Quarter: 2017Q1

REPORT INFORMATION
  Report Type: Spontaneous
  Country: US (occurrence: US)
  Receive Date: 20170109
  Receipt Date: 20170109
  Transmission Date: 20170428
  Serious: No
  Sender: FDA-Public Use
  Company Number: US-NEPHRON PHARMACEUTICALS CORPORATION-1061798

PATIENT
  Sex: Female
  Weight: 94.55 kg

DRUGS (19)
  1. ZOLPIDEM TARTRATE. [Concomitant]
     Active Substance: ZOLPIDEM TARTRATE
     Route: 048
  2. DULOXETINE. [Concomitant]
     Active Substance: DULOXETINE
     Route: 048
     Dates: start: 2001
  3. HYDROCODONE BITARTRATE AND ACETAMINOPHEN [Concomitant]
     Active Substance: ACETAMINOPHEN\HYDROCODONE BITARTRATE
     Route: 048
  4. SYNTHROID [Concomitant]
     Active Substance: LEVOTHYROXINE SODIUM
     Route: 048
  5. VESICARE [Concomitant]
     Active Substance: SOLIFENACIN SUCCINATE
     Route: 048
     Dates: start: 2006
  6. CLONAZEPAM. [Concomitant]
     Active Substance: CLONAZEPAM
     Route: 048
  7. RELPAX [Concomitant]
     Active Substance: ELETRIPTAN HYDROBROMIDE
     Route: 048
  8. NASONEX (MOMETASONE FUROATE MONOHYDRATE) [Concomitant]
     Active Substance: MOMETASONE FUROATE MONOHYDRATE
     Route: 045
  9. METAXALONE. [Concomitant]
     Active Substance: METAXALONE
     Route: 048
     Dates: start: 1990
  10. RESTASIS [Concomitant]
     Active Substance: CYCLOSPORINE
     Route: 031
  11. LISINOPRIL. [Concomitant]
     Active Substance: LISINOPRIL
     Route: 048
  12. PROAIR HFA [Concomitant]
     Active Substance: ALBUTEROL SULFATE
     Route: 055
     Dates: start: 2005
  13. ALBUTEROL SULFATE INHALATION SOLUTION, 0.083% [Suspect]
     Active Substance: ALBUTEROL SULFATE
     Indication: CHRONIC OBSTRUCTIVE PULMONARY DISEASE
     Route: 055
  14. LIDOCAINE PATCH [Concomitant]
     Active Substance: LIDOCAINE
     Route: 062
  15. ADVAIR HFA [Concomitant]
     Active Substance: FLUTICASONE PROPIONATE\SALMETEROL XINAFOATE
     Route: 055
  16. OXYGEN. [Concomitant]
     Active Substance: OXYGEN
  17. LYRICA [Concomitant]
     Active Substance: PREGABALIN
     Route: 048
  18. DEXILANT [Concomitant]
     Active Substance: DEXLANSOPRAZOLE
     Route: 048
  19. ZETIA [Concomitant]
     Active Substance: EZETIMIBE
     Route: 048

REACTIONS (1)
  - Psychomotor hyperactivity [Unknown]

NARRATIVE: CASE EVENT DATE: 2010
